FAERS Safety Report 9187260 (Version 1)
Quarter: 2013Q1

REPORT INFORMATION
  Report Type: Spontaneous
  Country: US (occurrence: US)
  Receive Date: 20130325
  Receipt Date: 20130325
  Transmission Date: 20140127
  Serious: No
  Sender: FDA-Public Use
  Company Number: US-009507513-1303USA006096

PATIENT
  Age: 66 None
  Sex: Female
  Weight: 52.61 kg

DRUGS (6)
  1. VICTRELIS [Suspect]
     Indication: CHRONIC HEPATITIS C
     Dosage: UNK
     Dates: start: 20120223
  2. REBETOL [Suspect]
     Indication: CHRONIC HEPATITIS C
     Dosage: 1000 MG, QD, IN DIVIDED DOSE
     Route: 048
     Dates: start: 20120127
  3. REBETOL [Suspect]
     Dosage: 600 MG, QD
     Route: 048
  4. PEGINTERFERON ALFA-2A [Suspect]
     Indication: CHRONIC HEPATITIS C
     Dosage: 180 MICROGRAM, QW
     Route: 058
     Dates: start: 20120127
  5. RIBASPHERE [Suspect]
     Dosage: 200 MG, UNK
  6. METFORMIN HYDROCHLORIDE [Concomitant]

REACTIONS (8)
  - Fatigue [Unknown]
  - Anaemia [Unknown]
  - Dizziness [Unknown]
  - Vertigo [Unknown]
  - Rash [Recovered/Resolved]
  - Constipation [Unknown]
  - Weight decreased [Unknown]
  - Rash [Unknown]
